FAERS Safety Report 15976845 (Version 2)
Quarter: 2019Q1

REPORT INFORMATION
  Report Type: Spontaneous
  Country: ID (occurrence: ID)
  Receive Date: 20190218
  Receipt Date: 20190222
  Transmission Date: 20190418
  Serious: Yes (Death, Life-Threatening, Other)
  Sender: FDA-Public Use
  Company Number: ID-ASTRAZENECA-2019SE27335

PATIENT
  Age: 74 Year
  Sex: Male

DRUGS (8)
  1. ASPILET [Concomitant]
     Active Substance: ASPIRIN
     Indication: ANGINA PECTORIS
  2. ALTEPLASE. [Concomitant]
     Active Substance: ALTEPLASE
     Dosage: 5.0MG ONCE/SINGLE ADMINISTRATION
     Route: 040
  3. VITAMIN K ANTAGONIST NOS [Concomitant]
     Route: 041
  4. WARFARIN [Concomitant]
     Active Substance: WARFARIN
     Dosage: 4.0MG UNKNOWN
  5. VITAMIN K ANTAGONIST NOS [Concomitant]
     Dosage: 5.0MG ONCE/SINGLE ADMINISTRATION
     Route: 040
  6. BRILINTA [Suspect]
     Active Substance: TICAGRELOR
     Indication: ANGINA PECTORIS
     Route: 048
  7. ALTEPLASE. [Concomitant]
     Active Substance: ALTEPLASE
     Route: 041
  8. HEPARIN [Concomitant]
     Active Substance: HEPARIN SODIUM

REACTIONS (9)
  - Haemoglobin decreased [Fatal]
  - Nausea [Fatal]
  - Off label use [Unknown]
  - Vomiting [Fatal]
  - Brain stem syndrome [Fatal]
  - Haemorrhage intracranial [Fatal]
  - Product use in unapproved indication [Unknown]
  - Peripheral ischaemia [Fatal]
  - Dizziness [Fatal]
